FAERS Safety Report 10030423 (Version 1)
Quarter: 2014Q1

REPORT INFORMATION
  Report Type: Spontaneous
  Country: US (occurrence: US)
  Receive Date: 20140323
  Receipt Date: 20140323
  Transmission Date: 20141002
  Serious: No
  Sender: FDA-Public Use
  Company Number: US-ALLERGAN-1312363US

PATIENT
  Age: 68 Year
  Sex: Female

DRUGS (8)
  1. LATISSE 0.03% [Suspect]
     Indication: GROWTH OF EYELASHES
     Dosage: UNK, QOD
  2. LATISSE 0.03% [Suspect]
     Dosage: UNK, QHS
     Dates: start: 201306, end: 201306
  3. LATISSE 0.03% [Suspect]
     Dosage: UNK, QHS
     Dates: start: 201306, end: 201306
  4. LATISSE 0.03% [Suspect]
     Dosage: UNK
  5. BLOOD PRESSURE MEDICATION NOS [Concomitant]
     Indication: HYPERTENSION
  6. HIGH CHOLESTEROL MEDICATION NOS [Concomitant]
     Indication: BLOOD CHOLESTEROL INCREASED
  7. POTASSIUM [Concomitant]
     Indication: PRODUCT USED FOR UNKNOWN INDICATION
  8. CELEBREX [Concomitant]
     Indication: PRODUCT USED FOR UNKNOWN INDICATION

REACTIONS (2)
  - Inappropriate schedule of drug administration [Unknown]
  - Vision blurred [Unknown]
